FAERS Safety Report 12540314 (Version 1)
Quarter: 2016Q3

REPORT INFORMATION
  Report Type: Spontaneous
  Country: US (occurrence: None)
  Receive Date: 20160707
  Receipt Date: 20160707
  Transmission Date: 20161109
  Serious: No
  Sender: FDA-Public Use
  Company Number: None

PATIENT
  Age: 3 Year
  Sex: Male

DRUGS (2)
  1. DORZOLAMIDE-TIMOLOL [Suspect]
     Active Substance: DORZOLAMIDE\TIMOLOL
     Indication: GLAUCOMA
     Dosage: 1 DROP B.I.D. OU
     Dates: start: 20150206, end: 20150622
  2. DORZOLAMIDE-TIMOLOL [Suspect]
     Active Substance: DORZOLAMIDE\TIMOLOL
     Indication: APHAKIA
     Dosage: 1 DROP B.I.D. OU
     Dates: start: 20150206, end: 20150622

REACTIONS (4)
  - Ocular hyperaemia [None]
  - Product substitution issue [None]
  - Pain [None]
  - Eye irritation [None]

NARRATIVE: CASE EVENT DATE: 20150622
